FAERS Safety Report 14628669 (Version 2)
Quarter: 2018Q2

REPORT INFORMATION
  Report Type: Spontaneous
  Country: DE (occurrence: DE)
  Receive Date: 20180313
  Receipt Date: 20180408
  Transmission Date: 20180711
  Serious: Yes (Other)
  Sender: FDA-Public Use
  Company Number: DE-DEXPHARM-20180166

PATIENT
  Age: 69 Year
  Sex: Male
  Weight: 60 kg

DRUGS (1)
  1. CHLORHEXAMED GEL 1% DENTAL GEL [Suspect]
     Active Substance: CHLORHEXIDINE GLUCONATE
     Indication: PERI-IMPLANTITIS
     Dosage: UNK UNK, BID (2)
     Dates: start: 201801, end: 2018

REACTIONS (5)
  - Chemical burn of gastrointestinal tract [Recovered/Resolved]
  - Pulpitis dental [Recovered/Resolved]
  - Swelling face [Recovered/Resolved]
  - Urticaria [Recovered/Resolved]
  - Noninfective gingivitis [Recovered/Resolved]

NARRATIVE: CASE EVENT DATE: 2018
